FAERS Safety Report 13307319 (Version 3)
Quarter: 2017Q1

REPORT INFORMATION
  Report Type: Report from Study
  Country: CN (occurrence: CN)
  Receive Date: 20170308
  Receipt Date: 20170322
  Transmission Date: 20170428
  Serious: Yes (Congenital Anomaly, Other)
  Sender: FDA-Public Use
  Company Number: CN-VIIV HEALTHCARE LIMITED-CN2017GSK033049

PATIENT
  Age: 2 Day
  Sex: Male
  Weight: 4.25 kg

DRUGS (2)
  1. FOLATE [Concomitant]
     Active Substance: FOLATE SODIUM
     Indication: NUTRITIONAL SUPPLEMENTATION
     Route: 064
  2. LAMIVUDINE. [Suspect]
     Active Substance: LAMIVUDINE
     Indication: HEPATITIS B
     Dosage: UNK, U
     Route: 064

REACTIONS (2)
  - Congenital hypothyroidism [Not Recovered/Not Resolved]
  - Foetal exposure during pregnancy [Unknown]

NARRATIVE: CASE EVENT DATE: 20150311
